FAERS Safety Report 22625782 (Version 3)
Quarter: 2024Q2

REPORT INFORMATION
  Report Type: Spontaneous
  Country: US (occurrence: US)
  Receive Date: 20230621
  Receipt Date: 20240514
  Transmission Date: 20240716
  Serious: Yes (Hospitalization)
  Sender: FDA-Public Use
  Company Number: US-SA-SAC20230620000040

PATIENT
  Age: 61 Year
  Sex: Female

DRUGS (5)
  1. KEVZARA [Suspect]
     Active Substance: SARILUMAB
     Indication: Osteoporosis
     Dosage: 200 MG, QOW
     Route: 058
     Dates: start: 202308
  2. KEVZARA [Suspect]
     Active Substance: SARILUMAB
     Indication: Osteoarthritis
     Dosage: 200 MG, QOW
     Route: 058
  3. KEVZARA [Suspect]
     Active Substance: SARILUMAB
     Indication: Polymyalgia rheumatica
  4. NORTRIPTYLINE [Concomitant]
     Active Substance: NORTRIPTYLINE
     Dosage: UNK
  5. LAMOTRIGINE [Concomitant]
     Active Substance: LAMOTRIGINE
     Dosage: UNK

REACTIONS (5)
  - Infection [Unknown]
  - Peripheral swelling [Unknown]
  - Lymphoedema [Unknown]
  - Dry mouth [Unknown]
  - Product use in unapproved indication [Unknown]

NARRATIVE: CASE EVENT DATE: 20230801
